FAERS Safety Report 8764967 (Version 3)
Quarter: 2014Q1

REPORT INFORMATION
  Report Type: Spontaneous
  Country: US (occurrence: US)
  Receive Date: 20120902
  Receipt Date: 20140116
  Transmission Date: 20141002
  Serious: Yes (Hospitalization, Other)
  Sender: FDA-Public Use
  Company Number: US-AMGEN-USASP2012054714

PATIENT
  Age: 44 Year
  Sex: Female
  Weight: 69.84 kg

DRUGS (13)
  1. ENBREL [Suspect]
     Indication: RHEUMATOID ARTHRITIS
     Dosage: 50 MG, QWK
     Route: 058
     Dates: start: 20000101
  2. MORPHINE [Suspect]
     Indication: PRODUCT USED FOR UNKNOWN INDICATION
     Dosage: 60 EVERY 12 HOURS AND MORPHINE 15MG EVERY 4 HOURS  TAKE 1 AND 2 AS NEEDED
     Route: 065
  3. DIAZEPAM [Concomitant]
     Indication: ANXIETY
     Dosage: 10 MG, TID
     Route: 048
     Dates: start: 20060824
  4. NYSTATIN [Concomitant]
     Dosage: 5 ML, QID
     Dates: start: 20061201
  5. CALCIUM [Concomitant]
     Dosage: 500 MG, TID
     Route: 048
     Dates: start: 20070516
  6. TRIAMTERENE/HCTZ [Concomitant]
     Dosage: ONE TABLET DAILY
     Route: 048
     Dates: start: 20080104
  7. MORPHINE SULFATE [Concomitant]
     Indication: PAIN
     Dosage: 60 MG, BID
     Route: 048
     Dates: start: 20090216
  8. MORPHINE SULFATE [Concomitant]
     Dosage: 15 MG, 1-2 TABLETS EVERY 6 HOURLY AS NEEDED.
     Route: 048
     Dates: start: 20090529
  9. CARISOPRODOL [Concomitant]
     Dosage: 350 MG, AS NEEDED
     Route: 048
     Dates: start: 20090803
  10. POLYETHYLENE GLYCOL [Concomitant]
     Dosage: ONE CAP FULL IN 8 ONCHES OF WATER OR JUICE DAILY
     Route: 048
     Dates: start: 20100208
  11. PREDNISONE [Concomitant]
     Dosage: 5 MG, BID
     Route: 048
     Dates: start: 20100412
  12. LISINOPRIL [Concomitant]
     Dosage: 10 MG, QD
     Route: 048
  13. FLUCONAZOLE [Concomitant]
     Dosage: 100 MG, QD
     Route: 048
     Dates: start: 20120612

REACTIONS (31)
  - Glaucoma [Recovered/Resolved]
  - Spinal fracture [Recovered/Resolved]
  - Ocular hyperaemia [Recovered/Resolved]
  - Limb discomfort [Not Recovered/Not Resolved]
  - Decubitus ulcer [Recovered/Resolved]
  - Diarrhoea [Not Recovered/Not Resolved]
  - Hemiparesis [Not Recovered/Not Resolved]
  - Pneumonia [Recovered/Resolved]
  - Loss of consciousness [Recovered/Resolved]
  - Bedridden [Recovered/Resolved]
  - Memory impairment [Not Recovered/Not Resolved]
  - Fibromyalgia [Not Recovered/Not Resolved]
  - Contusion [Not Recovered/Not Resolved]
  - Insomnia [Not Recovered/Not Resolved]
  - Musculoskeletal pain [Not Recovered/Not Resolved]
  - Arthralgia [Recovered/Resolved]
  - Cartilage injury [Recovered/Resolved]
  - Road traffic accident [Recovered/Resolved]
  - Rheumatoid arthritis [Not Recovered/Not Resolved]
  - Gingival swelling [Not Recovered/Not Resolved]
  - Stomatitis [Not Recovered/Not Resolved]
  - Fatigue [Not Recovered/Not Resolved]
  - Diabetes mellitus [Not Recovered/Not Resolved]
  - Muscular weakness [Not Recovered/Not Resolved]
  - Mobility decreased [Not Recovered/Not Resolved]
  - Constipation [Not Recovered/Not Resolved]
  - Nausea [Not Recovered/Not Resolved]
  - Muscle spasms [Not Recovered/Not Resolved]
  - Localised infection [Recovered/Resolved]
  - Tooth infection [Recovered/Resolved]
  - Abdominal pain [Not Recovered/Not Resolved]
